FAERS Safety Report 19093810 (Version 1)
Quarter: 2021Q2

REPORT INFORMATION
  Report Type: Spontaneous
  Country: CN (occurrence: CN)
  Receive Date: 20210405
  Receipt Date: 20210405
  Transmission Date: 20210717
  Serious: Yes (Hospitalization, Other)
  Sender: FDA-Public Use
  Company Number: CN-PFIZER INC-2021326147

PATIENT
  Age: 80 Year
  Sex: Female
  Weight: 50 kg

DRUGS (6)
  1. SOLU?MEDROL [Suspect]
     Active Substance: METHYLPREDNISOLONE SODIUM SUCCINATE
     Indication: ANTIINFLAMMATORY THERAPY
  2. SOLU?MEDROL [Suspect]
     Active Substance: METHYLPREDNISOLONE SODIUM SUCCINATE
     Indication: STRESS
     Dosage: 40 MG, 2X/DAY
     Route: 041
     Dates: start: 20210318, end: 20210321
  3. LANTUS [Concomitant]
     Active Substance: INSULIN GLARGINE
     Indication: BLOOD GLUCOSE INCREASED
     Dosage: 34.000 IU, 1X/DAY
     Route: 058
     Dates: start: 20210318, end: 20210322
  4. LANTUS [Concomitant]
     Active Substance: INSULIN GLARGINE
     Dosage: 29 IU, 1X/DAY
     Route: 058
     Dates: start: 20210323, end: 20210323
  5. SODIUM CHLORIDE. [Concomitant]
     Active Substance: SODIUM CHLORIDE
     Indication: VEHICLE SOLUTION USE
     Dosage: 100.000 ML, 2X/DAY
     Route: 041
     Dates: start: 20210318, end: 20210321
  6. NOVORAPID [Concomitant]
     Active Substance: INSULIN ASPART
     Indication: BLOOD GLUCOSE INCREASED
     Dosage: 8.000 IU, 3X/DAY
     Route: 058
     Dates: start: 20210318, end: 20210323

REACTIONS (1)
  - Blood glucose increased [Recovered/Resolved]

NARRATIVE: CASE EVENT DATE: 20210318
